FAERS Safety Report 8060572-5 (Version None)
Quarter: 2012Q1

REPORT INFORMATION
  Report Type: 
  Country: None (occurrence: None)
  Receive Date: 20120120
  Receipt Date: 20120119
  Transmission Date: 20120608
  Serious: No
  Sender: FDA-Public Use
  Company Number: PHEH2011US011767

PATIENT
  Sex: Male

DRUGS (8)
  1. GLUCOSAMINE /CHONDROITIN /MSM [Concomitant]
  2. CETIRIZINE HCL [Concomitant]
  3. CRESTOR [Concomitant]
  4. MULTI-VITAMINS [Concomitant]
  5. LEVEMIR [Concomitant]
  6. TASIGNA [Suspect]
     Indication: CHRONIC MYELOID LEUKAEMIA
     Dosage: 300 MG, BID
     Route: 048
     Dates: start: 20111016
  7. ENALAPRIL MALEATE AND HYDROCHLOROTHIAZIDE [Concomitant]
  8. COREG [Concomitant]

REACTIONS (6)
  - PRURITUS [None]
  - SKIN HYPERTROPHY [None]
  - RASH [None]
  - FORMICATION [None]
  - PLATELET COUNT DECREASED [None]
  - FLUSHING [None]
